FAERS Safety Report 10738457 (Version 1)
Quarter: 2015Q1

REPORT INFORMATION
  Report Type: Spontaneous
  Country: JP (occurrence: JP)
  Receive Date: 20150126
  Receipt Date: 20150126
  Transmission Date: 20150721
  Serious: Yes (Death)
  Sender: FDA-Public Use
  Company Number: JP-WATSON-2015-00629

PATIENT
  Age: 76 Year
  Sex: Male

DRUGS (3)
  1. DEXAMETHASONE (UNKNOWN) [Suspect]
     Active Substance: DEXAMETHASONE
     Indication: WALDENSTROM^S MACROGLOBULINAEMIA
     Dosage: 40 MG ON DAYS 1, 4, 8, 19, 31 AND 34
     Route: 042
  2. BORTEZOMIB [Suspect]
     Active Substance: BORTEZOMIB
     Indication: WALDENSTROM^S MACROGLOBULINAEMIA
     Dosage: 1 MG/M2, UNK
     Route: 058
  3. RITUXIMAB [Suspect]
     Active Substance: RITUXIMAB
     Indication: WALDENSTROM^S MACROGLOBULINAEMIA
     Dosage: 375 MG/M2 ON DAY 19
     Route: 042

REACTIONS (4)
  - Bacterial translocation [Fatal]
  - Septic shock [Fatal]
  - Klebsiella infection [Fatal]
  - Necrotising fasciitis [Fatal]
